FAERS Safety Report 9337615 (Version 1)
Quarter: 2013Q2

REPORT INFORMATION
  Report Type: Spontaneous
  Country: US (occurrence: US)
  Receive Date: 20130607
  Receipt Date: 20130607
  Transmission Date: 20140414
  Serious: Yes (Hospitalization)
  Sender: FDA-Public Use
  Company Number: 2013SP001584

PATIENT
  Age: 39 Year
  Sex: Female
  Weight: 49 kg

DRUGS (8)
  1. LEVALBUTEROL INHALATION SOLUTION [Suspect]
     Indication: CYSTIC FIBROSIS
     Route: 055
     Dates: start: 201210
  2. XOPENEX INHALATION SOLUTION [Concomitant]
     Indication: CYSTIC FIBROSIS
     Route: 055
  3. XOPENEX HFA INHALATION AEROSOL [Concomitant]
     Indication: CYSTIC FIBROSIS
     Route: 055
  4. SODIUM CHLORIDE [Concomitant]
     Indication: CYSTIC FIBROSIS
     Route: 055
  5. PULMOZYME [Concomitant]
     Indication: CYSTIC FIBROSIS
  6. ADVAIR [Concomitant]
     Indication: CYSTIC FIBROSIS
  7. AZITHROMYCIN [Concomitant]
     Indication: CYSTIC FIBROSIS
  8. ALBUTEROL [Concomitant]
     Indication: PRODUCT USED FOR UNKNOWN INDICATION

REACTIONS (3)
  - Infective pulmonary exacerbation of cystic fibrosis [Unknown]
  - Drug ineffective [None]
  - Wheezing [Unknown]
